FAERS Safety Report 5750411-7 (Version None)
Quarter: 2008Q2

REPORT INFORMATION
  Report Type: 
  Country: None (occurrence: None)
  Receive Date: 20080523
  Receipt Date: 20080523
  Transmission Date: 20081010
  Serious: Yes (Death)
  Sender: FDA-Public Use
  Company Number: None

PATIENT
  Age: 20 Year
  Sex: Male
  Weight: 108.8633 kg

DRUGS (2)
  1. DEPAKOTE [Suspect]
     Indication: CONVULSION
     Dosage: 1 TO 2 TABLETS  2 OR 3 X/DAY
     Dates: start: 19930101, end: 20010816
  2. LAMICTAL [Suspect]
     Indication: CONVULSION
     Dosage: 2 TABLETS 2 X/DAY
     Dates: start: 19990101, end: 20010816

REACTIONS (5)
  - LETHARGY [None]
  - LOSS OF CONSCIOUSNESS [None]
  - RESPIRATORY ARREST [None]
  - SUDDEN DEATH [None]
  - WEIGHT INCREASED [None]
